FAERS Safety Report 5714168-8 (Version None)
Quarter: 2008Q2

REPORT INFORMATION
  Report Type: 
  Country: None (occurrence: None)
  Receive Date: 20080423
  Receipt Date: 20070822
  Transmission Date: 20081010
  Serious: No
  Sender: FDA-Public Use
  Company Number: US-KINGPHARMUSA00001-K200701077

PATIENT

DRUGS (6)
  1. SKELAXIN [Suspect]
     Indication: MUSCULOSKELETAL PAIN
     Dosage: 800 MG, QD
     Route: 048
     Dates: start: 20070801, end: 20070801
  2. SKELAXIN [Suspect]
     Dosage: 400 MG, BID
     Route: 048
     Dates: start: 20070801
  3. AMOXICILLIN [Suspect]
     Indication: INFECTION
     Dosage: UNK, 2 UNITS, QD
     Route: 048
     Dates: start: 20070821, end: 20070822
  4. OXYCODONE HCL [Concomitant]
     Indication: FIBROMYALGIA
     Dosage: 10 MG, BID
  5. OXYCODONE HCL [Concomitant]
     Indication: MUSCULOSKELETAL CHEST PAIN
  6. VACCINES [Concomitant]
     Indication: HERPES ZOSTER
     Dates: start: 20070821

REACTIONS (4)
  - ERYTHEMA [None]
  - MALAISE [None]
  - PRURITUS GENERALISED [None]
  - SKIN DISORDER [None]
